FAERS Safety Report 11813537 (Version 1)
Quarter: 2015Q4

REPORT INFORMATION
  Report Type: Spontaneous
  Country: US (occurrence: US)
  Receive Date: 20151209
  Receipt Date: 20151209
  Transmission Date: 20160305
  Serious: Yes (Death, Hospitalization)
  Sender: FDA-Public Use
  Company Number: US-TAIHO ONCOLOGY INC-EU-2015-00285

PATIENT
  Age: 57 Year
  Sex: Female
  Weight: 62.65 kg

DRUGS (1)
  1. LONSURF [Suspect]
     Active Substance: TIPIRACIL HYDROCHLORIDE\TRIFLURIDINE
     Indication: OVARIAN CANCER
     Dosage: CURRENT CYCLE 1, 200 MG/DAILY FROM DAY 1 AND 120 MG/DAILY FROM DAY 8
     Route: 048
     Dates: start: 20151108

REACTIONS (4)
  - Off label use [Unknown]
  - Intentional product misuse [Unknown]
  - Dyspnoea [Unknown]
  - Disease progression [Fatal]

NARRATIVE: CASE EVENT DATE: 20151108
